FAERS Safety Report 9696948 (Version 2)
Quarter: 2013Q4

REPORT INFORMATION
  Report Type: Spontaneous
  Country: US (occurrence: US)
  Receive Date: 20131119
  Receipt Date: 20131212
  Transmission Date: 20140711
  Serious: No
  Sender: FDA-Public Use
  Company Number: US-GILEAD-2013-0088097

PATIENT
  Sex: Male

DRUGS (5)
  1. LETAIRIS [Suspect]
     Indication: PULMONARY HYPERTENSION
     Dosage: 5 MG, QD
     Dates: start: 20131025
  2. LETAIRIS [Suspect]
     Indication: DRUG ABUSE
  3. SILDENAFIL [Suspect]
  4. WARFARIN [Concomitant]
  5. COUMADIN                           /00014802/ [Concomitant]

REACTIONS (1)
  - International normalised ratio increased [Unknown]
